FAERS Safety Report 12941895 (Version 2)
Quarter: 2017Q1

REPORT INFORMATION
  Report Type: Spontaneous
  Country: PT (occurrence: PT)
  Receive Date: 20161115
  Receipt Date: 20170113
  Transmission Date: 20170428
  Serious: Yes (Hospitalization, Disabling)
  Sender: FDA-Public Use
  Company Number: PT-ALLERGAN-1675711US

PATIENT
  Age: 64 Year
  Sex: Female

DRUGS (17)
  1. ZILPEN [Interacting]
     Active Substance: ACETAMINOPHEN\TRAMADOL HYDROCHLORIDE
     Indication: PAIN
     Route: 048
     Dates: start: 20160505, end: 20160508
  2. ZYLORIC [Concomitant]
     Active Substance: ALLOPURINOL
     Indication: HYPERURICAEMIA
     Dosage: 300 MG, QD
     Route: 048
  3. FUROSEMIDA [Concomitant]
     Active Substance: FUROSEMIDE
     Indication: CHRONIC KIDNEY DISEASE
     Route: 048
  4. ZYLORIC [Concomitant]
     Active Substance: ALLOPURINOL
     Route: 048
  5. PROPRANOLOL [Concomitant]
     Active Substance: PROPRANOLOL HYDROCHLORIDE
     Indication: HYPERTENSION
     Dosage: 80 MG, QD
     Route: 048
     Dates: start: 2008
  6. ESCITALOPRAM OXALATE - BP [Suspect]
     Active Substance: ESCITALOPRAM OXALATE
     Indication: DEPRESSION
     Dosage: 20 MG, QD
     Route: 048
     Dates: start: 2012, end: 20160513
  7. ENALAPRIL [Concomitant]
     Active Substance: ENALAPRIL
     Indication: HYPERTENSION
     Dosage: 20 MG, QD
     Route: 048
  8. FUROSEMIDA [Concomitant]
     Active Substance: FUROSEMIDE
     Indication: CHRONIC KIDNEY DISEASE
     Dosage: 20 MG, QD
     Route: 048
  9. KAINEVER [Concomitant]
     Active Substance: ESTAZOLAM
     Indication: INSOMNIA
     Dosage: 2 MG, QD
     Route: 048
     Dates: start: 2012
  10. DOMPERIDONA [Concomitant]
     Indication: NAUSEA
     Route: 048
     Dates: start: 20160505, end: 20160508
  11. CIPRALEX [Interacting]
     Active Substance: ESCITALOPRAM OXALATE
     Indication: DEPRESSION
     Route: 048
     Dates: start: 2012, end: 20160513
  12. ADT (AMITRIPTYLINE) [Interacting]
     Active Substance: AMITRIPTYLINE
     Indication: DEPRESSION
     Dosage: 25 MG, QD
     Dates: start: 2012, end: 20160513
  13. LEVOFLOXACINA [Interacting]
     Active Substance: LEVOFLOXACIN
     Indication: CELLULITIS
     Route: 048
     Dates: start: 20160501, end: 20160508
  14. AMLODIPINA [Concomitant]
     Active Substance: AMLODIPINE BESYLATE
     Route: 048
  15. AMLODIPINA [Concomitant]
     Active Substance: AMLODIPINE BESYLATE
     Indication: HYPERTENSION
     Dosage: 5 MG, QD
     Route: 048
  16. ENALAPRIL [Concomitant]
     Active Substance: ENALAPRIL
     Route: 048
  17. ADALGUR N [Concomitant]
     Active Substance: ACETAMINOPHEN\THIOCOLCHICOSIDE
     Indication: PAIN
     Dosage: 1 DF, Q8HR
     Route: 048
     Dates: start: 20160501, end: 20160505

REACTIONS (10)
  - Hallucination, visual [Recovered/Resolved with Sequelae]
  - Blood creatinine increased [Recovered/Resolved with Sequelae]
  - Tachyphrenia [Recovered/Resolved with Sequelae]
  - Gamma-glutamyltransferase increased [Recovered/Resolved with Sequelae]
  - Psychomotor hyperactivity [Recovered/Resolved with Sequelae]
  - Insomnia [Recovered/Resolved with Sequelae]
  - Major depression [Recovered/Resolved with Sequelae]
  - Mania [Recovered/Resolved with Sequelae]
  - Chronic kidney disease [Recovered/Resolved with Sequelae]
  - Flight of ideas [Recovered/Resolved with Sequelae]

NARRATIVE: CASE EVENT DATE: 201605
